FAERS Safety Report 5895946-1 (Version None)
Quarter: 2008Q3

REPORT INFORMATION
  Report Type: 
  Country: None (occurrence: None)
  Receive Date: 20080924
  Receipt Date: 20080918
  Transmission Date: 20090109
  Serious: No
  Sender: FDA-Public Use
  Company Number: US-B.I. PHARMACEUTICALS,INC./RIDGEFIELD-2008-BP-12219BP

PATIENT
  Sex: Female

DRUGS (8)
  1. SPIRIVA [Suspect]
     Indication: CHRONIC OBSTRUCTIVE PULMONARY DISEASE
     Dosage: 18MCG
     Route: 055
     Dates: start: 20030101
  2. CRESTOR [Suspect]
     Indication: HYPERLIPIDAEMIA
     Dosage: 40MG
     Route: 048
     Dates: start: 20030101
  3. ADVAIR DISKUS 100/50 [Concomitant]
     Indication: CHRONIC OBSTRUCTIVE PULMONARY DISEASE
     Route: 045
     Dates: start: 20060101
  4. ALBUTEROL [Concomitant]
     Indication: CHRONIC OBSTRUCTIVE PULMONARY DISEASE
     Route: 055
     Dates: start: 19850101
  5. ALBUTEROL [Concomitant]
     Route: 055
     Dates: start: 19850101
  6. PLAVIX [Concomitant]
     Indication: MYOCARDIAL INFARCTION
     Dosage: 40MG
     Route: 048
     Dates: start: 20000101
  7. LASIX [Concomitant]
     Indication: PROPHYLAXIS
     Dosage: 20MG
     Route: 048
     Dates: start: 20030101
  8. FOSAMAX [Concomitant]
     Indication: OSTEOPOROSIS
     Route: 048
     Dates: start: 19880101

REACTIONS (3)
  - CONDITION AGGRAVATED [None]
  - DYSPHONIA [None]
  - PAIN IN EXTREMITY [None]
